FAERS Safety Report 15190636 (Version 1)
Quarter: 2018Q3

REPORT INFORMATION
  Report Type: Spontaneous
  Country: AT (occurrence: AT)
  Receive Date: 20180724
  Receipt Date: 20180724
  Transmission Date: 20181010
  Serious: Yes (Death)
  Sender: FDA-Public Use
  Company Number: AT-TEVA-2018-AT-930210

PATIENT
  Age: 36 Year
  Sex: Male
  Weight: 77.8 kg

DRUGS (9)
  1. INDERAL [Concomitant]
     Active Substance: PROPRANOLOL HYDROCHLORIDE
     Dates: start: 20170913, end: 20170914
  2. SEROQUEL [Suspect]
     Active Substance: QUETIAPINE FUMARATE
     Dates: start: 20170915, end: 20170915
  3. MIRTAZAPINE. [Suspect]
     Active Substance: MIRTAZAPINE
     Dates: start: 201708
  4. SEROQUEL [Suspect]
     Active Substance: QUETIAPINE FUMARATE
     Dates: start: 20170913, end: 20170914
  5. INDERAL [Concomitant]
     Active Substance: PROPRANOLOL HYDROCHLORIDE
     Dates: start: 20170915, end: 20170915
  6. MIRTAZAPINE. [Suspect]
     Active Substance: MIRTAZAPINE
     Dates: start: 20170913, end: 20170915
  7. CIPRALEX [Suspect]
     Active Substance: ESCITALOPRAM OXALATE
     Dates: start: 20170914, end: 20170915
  8. CIPRALEX [Suspect]
     Active Substance: ESCITALOPRAM OXALATE
     Dates: start: 201708
  9. ZOLDEM [Concomitant]
     Active Substance: ZOLPIDEM TARTRATE
     Indication: SLEEP DISORDER
     Dates: start: 20170914, end: 20170914

REACTIONS (1)
  - Completed suicide [Fatal]

NARRATIVE: CASE EVENT DATE: 20170915
